FAERS Safety Report 20743361 (Version 1)
Quarter: 2022Q2

REPORT INFORMATION
  Report Type: Spontaneous
  Country: US (occurrence: US)
  Receive Date: 20220425
  Receipt Date: 20220425
  Transmission Date: 20220721
  Serious: No
  Sender: FDA-Public Use
  Company Number: US-LUPIN PHARMACEUTICALS INC.-2022-06039

PATIENT
  Age: 10 Year
  Sex: Female
  Weight: 17.2 kg

DRUGS (8)
  1. METHYLPREDNISOLONE [Suspect]
     Active Substance: METHYLPREDNISOLONE
     Indication: Engraftment syndrome
     Dosage: UNK
     Route: 065
  2. BORTEZOMIB [Concomitant]
     Active Substance: BORTEZOMIB
     Indication: Prophylaxis
     Dosage: UNK
     Route: 065
  3. BUSULFAN [Concomitant]
     Active Substance: BUSULFAN
     Indication: Prophylaxis
     Dosage: UNK
     Route: 065
  4. CYCLOPHOSPHAMIDE [Concomitant]
     Active Substance: CYCLOPHOSPHAMIDE
     Indication: Prophylaxis
     Dosage: UNK
     Route: 065
  5. FLUDARABINE [Concomitant]
     Active Substance: FLUDARABINE PHOSPHATE
     Indication: Prophylaxis
     Dosage: UNK
     Route: 065
  6. THYMOCYTE IMMUNE GLOBULIN NOS [Concomitant]
     Active Substance: THYMOCYTE IMMUNE GLOBULIN NOS
     Indication: Prophylaxis
     Dosage: UNK
     Route: 065
  7. EMAPALUMAB [Concomitant]
     Active Substance: EMAPALUMAB
     Indication: Prophylaxis
     Dosage: 150 MILLIGRAM
     Route: 065
  8. ECULIZUMAB [Concomitant]
     Active Substance: ECULIZUMAB
     Indication: Prophylaxis
     Dosage: 600 MILLIGRAM
     Route: 065

REACTIONS (1)
  - Off label use [Unknown]
